FAERS Safety Report 7772232-6 (Version None)
Quarter: 2011Q3

REPORT INFORMATION
  Report Type: 
  Country: None (occurrence: None)
  Receive Date: 20110922
  Receipt Date: 20110705
  Transmission Date: 20111222
  Serious: No
  Sender: FDA-Public Use
  Company Number: US-ASTRAZENECA-2011SE27857

PATIENT
  Age: 40 Year
  Sex: Female
  Weight: 58.1 kg

DRUGS (7)
  1. SEROQUEL XR [Suspect]
     Indication: AFFECTIVE DISORDER
     Route: 048
     Dates: start: 20110201, end: 20110507
  2. PROZAC [Concomitant]
     Indication: DEPRESSION
     Route: 048
     Dates: start: 20110102
  3. SEROQUEL XR [Suspect]
     Route: 048
     Dates: start: 20110216
  4. SEROQUEL XR [Suspect]
     Indication: SLEEP DISORDER
     Route: 048
     Dates: start: 20110201, end: 20110507
  5. NEURONTIN [Concomitant]
     Indication: ANXIETY
     Route: 048
     Dates: start: 20110216, end: 20110301
  6. SEROQUEL XR [Suspect]
     Route: 048
     Dates: start: 20110216
  7. TRAZODONE HYDROCHLORIDE [Concomitant]
     Indication: SLEEP DISORDER
     Dates: start: 20110102, end: 20110301

REACTIONS (8)
  - CHEST PAIN [None]
  - PAIN IN JAW [None]
  - INSOMNIA [None]
  - VOMITING [None]
  - NAUSEA [None]
  - WRONG TECHNIQUE IN DRUG USAGE PROCESS [None]
  - DRUG DOSE OMISSION [None]
  - OFF LABEL USE [None]
